FAERS Safety Report 19569109 (Version 1)
Quarter: 2021Q3

REPORT INFORMATION
  Report Type: Spontaneous
  Country: US (occurrence: US)
  Receive Date: 20210714
  Receipt Date: 20210714
  Transmission Date: 20211014
  Serious: No
  Sender: FDA-Public Use
  Company Number: US-SA-2021SA229328

PATIENT
  Age: 41 Year
  Sex: Female

DRUGS (3)
  1. DUPIXENT [Suspect]
     Active Substance: DUPILUMAB
     Indication: DERMATITIS ATOPIC
     Dosage: UNK
     Dates: start: 20210205, end: 2021
  2. COVID?19 VACCINE NOS. [Suspect]
     Active Substance: COVID-19 VACCINE NOS
     Indication: COVID-19 IMMUNISATION
  3. COVID?19 VACCINE NOS. [Suspect]
     Active Substance: COVID-19 VACCINE NOS
     Dosage: UNK
     Dates: start: 202102, end: 202102

REACTIONS (4)
  - Peripheral swelling [Not Recovered/Not Resolved]
  - Rash [Not Recovered/Not Resolved]
  - Pruritus [Not Recovered/Not Resolved]
  - Skin irritation [Not Recovered/Not Resolved]

NARRATIVE: CASE EVENT DATE: 2021
